FAERS Safety Report 9307961 (Version 2)
Quarter: 2014Q1

REPORT INFORMATION
  Report Type: Spontaneous
  Country: US (occurrence: US)
  Receive Date: 20130524
  Receipt Date: 20140114
  Transmission Date: 20141002
  Serious: Yes (Hospitalization, Other)
  Sender: FDA-Public Use
  Company Number: US-ASTELLAS-2013US005392

PATIENT
  Age: 63 Year
  Sex: Female

DRUGS (2)
  1. PROGRAF [Suspect]
     Indication: LIVER TRANSPLANT
     Dosage: 3 MG IN AM, 4 MG IN PM
     Route: 048
     Dates: start: 2008
  2. PROGRAF [Suspect]
     Indication: RENAL TRANSPLANT

REACTIONS (2)
  - Hospitalisation [Unknown]
  - Liver transplant [Unknown]
